FAERS Safety Report 19942521 (Version 1)
Quarter: 2021Q4

REPORT INFORMATION
  Report Type: Spontaneous
  Country: US (occurrence: US)
  Receive Date: 20211012
  Receipt Date: 20211012
  Transmission Date: 20220303
  Serious: No
  Sender: FDA-Public Use
  Company Number: US-GW PHARMA-202110USGW04853

PATIENT

DRUGS (1)
  1. EPIDIOLEX [Suspect]
     Active Substance: CANNABIDIOL
     Indication: Epilepsy
     Dosage: 1740 MILLIGRAM, QD (7.4 ML EVERY MORNING AND 10 ML IN THE EVENING)
     Route: 048
     Dates: start: 202012

REACTIONS (2)
  - Anger [Unknown]
  - Aggression [Unknown]
